FAERS Safety Report 7269519-2 (Version None)
Quarter: 2011Q1

REPORT INFORMATION
  Report Type: 
  Country: None (occurrence: None)
  Receive Date: 20110202
  Receipt Date: 20110119
  Transmission Date: 20110831
  Serious: Yes (Death)
  Sender: FDA-Public Use
  Company Number: GB-RANBAXY-2011R1-40979

PATIENT
  Age: 25 Year
  Sex: Male

DRUGS (16)
  1. CYCLOSERINE [Concomitant]
     Indication: TUBERCULOSIS
     Dosage: UNK
     Route: 065
  2. ONDANSETRON [Suspect]
     Indication: PRODUCT USED FOR UNKNOWN INDICATION
     Dosage: UNK
     Route: 065
  3. HEPARIN LOW MOLECULAR WEIGHT UNSPECIFIED [Concomitant]
     Indication: PRODUCT USED FOR UNKNOWN INDICATION
     Dosage: UNK
     Route: 065
  4. AMIKACIN [Concomitant]
     Indication: TUBERCULOSIS
     Dosage: UNK
     Route: 042
  5. FLUCONAZOLE [Suspect]
     Indication: ORAL CANDIDIASIS
     Dosage: UNK
     Route: 065
  6. CLOFAZIMINE [Concomitant]
     Indication: PRODUCT USED FOR UNKNOWN INDICATION
     Dosage: UNK
     Route: 065
  7. PYRAZINAMIDE [Concomitant]
     Indication: TUBERCULOSIS
     Dosage: UNK
     Route: 042
  8. TRUVADA [Concomitant]
     Indication: HIV INFECTION
     Dosage: UNK
     Route: 065
  9. DARUNAVIR ETHANOLATE [Concomitant]
     Indication: HIV INFECTION
     Dosage: UNK
     Route: 065
  10. ETHAMBUTOL HYDROCHLORIDE [Concomitant]
     Indication: TUBERCULOSIS
     Dosage: UNK
     Route: 042
  11. PROTHIONAMIDE [Concomitant]
     Indication: TUBERCULOSIS
     Dosage: UNK
     Route: 042
  12. VALGANCICLOVIR HCL [Concomitant]
     Indication: PRODUCT USED FOR UNKNOWN INDICATION
     Dosage: UNK
     Route: 065
  13. LINEZOLID [Concomitant]
     Indication: TUBERCULOSIS
     Dosage: UNK
     Route: 065
  14. MOXIFLOXACIN [Suspect]
     Indication: TUBERCULOSIS
     Dosage: UNK
     Route: 065
  15. RITONAVIR [Suspect]
     Indication: HIV INFECTION
     Dosage: UNK
     Route: 065
  16. EFAVIRENZ [Concomitant]
     Indication: HIV INFECTION
     Dosage: UNK
     Route: 065

REACTIONS (2)
  - SUDDEN DEATH [None]
  - ARRHYTHMIA [None]
